FAERS Safety Report 21062813 (Version 2)
Quarter: 2022Q4

REPORT INFORMATION
  Report Type: Spontaneous
  Country: AU (occurrence: AU)
  Receive Date: 20220711
  Receipt Date: 20221121
  Transmission Date: 20230113
  Serious: Yes (Death, Hospitalization, Other)
  Sender: FDA-Public Use
  Company Number: AU-AMGEN-AUSSP2022115921

PATIENT

DRUGS (1)
  1. PROLIA [Suspect]
     Active Substance: DENOSUMAB
     Indication: Osteoporosis
     Dosage: UNK
     Route: 065

REACTIONS (7)
  - Chronic kidney disease [Fatal]
  - Dementia [Fatal]
  - Coronary artery disease [Fatal]
  - Chronic obstructive pulmonary disease [Fatal]
  - Atrial fibrillation [Fatal]
  - Anaemia [Fatal]
  - Hypertension [Unknown]
